FAERS Safety Report 7073108-2 (Version None)
Quarter: 2010Q4

REPORT INFORMATION
  Report Type: 
  Country: None (occurrence: None)
  Receive Date: 20101029
  Receipt Date: 20100604
  Transmission Date: 20110411
  Serious: No
  Sender: FDA-Public Use
  Company Number: A0856744A

PATIENT
  Age: 62 Year
  Sex: Male

DRUGS (8)
  1. ADVAIR DISKUS 100/50 [Suspect]
     Indication: ASTHMA
     Dosage: 2PUFF THREE TIMES PER DAY
     Route: 055
  2. ALLERGEN [Concomitant]
  3. ASTELIN [Concomitant]
  4. NEXIUM [Concomitant]
  5. FLUTICASONE PROPIONATE [Concomitant]
  6. FOLIC ACID [Concomitant]
  7. SINGULAIR [Concomitant]
  8. UNKNOWN MEDICATION [Concomitant]

REACTIONS (9)
  - COUGH [None]
  - INFLUENZA LIKE ILLNESS [None]
  - INSOMNIA [None]
  - MALAISE [None]
  - PAIN [None]
  - PARANASAL SINUS HYPERSECRETION [None]
  - PRODUCT QUALITY ISSUE [None]
  - SINUS CONGESTION [None]
  - WITHDRAWAL SYNDROME [None]
